FAERS Safety Report 7812157-0 (Version None)
Quarter: 2011Q4

REPORT INFORMATION
  Report Type: 
  Country: None (occurrence: None)
  Receive Date: 20111013
  Receipt Date: 20111003
  Transmission Date: 20120403
  Serious: Yes (Hospitalization)
  Sender: FDA-Public Use
  Company Number: PHHY2011US65611

PATIENT
  Sex: Male
  Weight: 75.737 kg

DRUGS (1)
  1. GLEEVEC [Suspect]
     Indication: CHRONIC MYELOID LEUKAEMIA
     Dosage: UNK

REACTIONS (4)
  - INFECTION [None]
  - WOUND [None]
  - JOINT SWELLING [None]
  - ARTHROPOD BITE [None]
